FAERS Safety Report 6693930-1 (Version None)
Quarter: 2010Q2

REPORT INFORMATION
  Report Type: 
  Country: None (occurrence: None)
  Receive Date: 20100423
  Receipt Date: 20100413
  Transmission Date: 20101027
  Serious: Yes (Hospitalization, Other)
  Sender: FDA-Public Use
  Company Number: JP-PFIZER INC-2010042310

PATIENT
  Age: 66 Year
  Sex: Female

DRUGS (4)
  1. CHAMPIX [Suspect]
     Indication: SMOKING CESSATION THERAPY
     Dosage: 1 MG, 2X/DAY
     Dates: start: 20100308
  2. CHAMPIX [Suspect]
     Dosage: 2 MG/DAY
  3. MYSLEE [Concomitant]
  4. LITHIUM CARBONATE [Concomitant]

REACTIONS (6)
  - DECREASED APPETITE [None]
  - DEHYDRATION [None]
  - DEPRESSION [None]
  - DIABETIC NEPHROPATHY [None]
  - FLUID INTAKE REDUCED [None]
  - RENAL FAILURE ACUTE [None]
